FAERS Safety Report 5245720-4 (Version None)
Quarter: 2007Q1

REPORT INFORMATION
  Report Type: 
  Country: None (occurrence: None)
  Receive Date: 20070216
  Receipt Date: 20070206
  Transmission Date: 20070707
  Serious: Yes (Hospitalization)
  Sender: FDA-Public Use
  Company Number: 2006BI014962

PATIENT
  Age: 46 Year
  Sex: Female
  Weight: 86.1834 kg

DRUGS (8)
  1. AVONEX [Suspect]
     Indication: MULTIPLE SCLEROSIS
     Dosage: 30 UG;QW;IM
     Route: 030
     Dates: start: 20051101
  2. ACCOLATE [Concomitant]
  3. ADVAIR DISKUS 100/50 [Concomitant]
  4. DUONEB [Concomitant]
  5. SPIRIVA [Concomitant]
  6. ZOMIG [Concomitant]
  7. MIRAPEX [Concomitant]
  8. EFFEXOR XR [Concomitant]

REACTIONS (3)
  - GASTRIC HAEMORRHAGE [None]
  - PEPTIC ULCER [None]
  - PNEUMONIA [None]
